FAERS Safety Report 5163023-3 (Version None)
Quarter: 2006Q4

REPORT INFORMATION
  Report Type: 
  Country: None (occurrence: None)
  Receive Date: 20061201
  Receipt Date: 20061031
  Transmission Date: 20070319
  Serious: Yes (Other)
  Sender: FDA-Public Use
  Company Number: ES-AMGEN-UK198796

PATIENT
  Sex: Male

DRUGS (5)
  1. PALIFERMIN [Suspect]
     Indication: STOMATITIS
     Route: 042
     Dates: start: 20061027, end: 20061029
  2. MELPHALAN [Concomitant]
     Route: 065
  3. ENALAPRIL MALEATE [Concomitant]
     Route: 048
     Dates: start: 20061025, end: 20061101
  4. SEPTRIN [Concomitant]
     Route: 048
     Dates: start: 20061028, end: 20061031
  5. ALLOPURINOL [Concomitant]
     Route: 048
     Dates: start: 20061025, end: 20061031

REACTIONS (1)
  - RENAL FAILURE [None]
